FAERS Safety Report 23986716 (Version 1)
Quarter: 2024Q2

REPORT INFORMATION
  Report Type: Spontaneous
  Country: US (occurrence: None)
  Receive Date: 20240617
  Receipt Date: 20240617
  Transmission Date: 20240715
  Serious: No
  Sender: FDA-Public Use
  Company Number: None

PATIENT
  Age: 85 Year
  Sex: Male
  Weight: 78 kg

DRUGS (1)
  1. LENALIDOMIDE [Suspect]
     Active Substance: LENALIDOMIDE
     Indication: Diffuse large B-cell lymphoma
     Dosage: 20 MG DAILY ORAL?
     Route: 048
     Dates: start: 20240617

REACTIONS (2)
  - Diffuse large B-cell lymphoma [None]
  - Off label use [None]

NARRATIVE: CASE EVENT DATE: 20240617
